FAERS Safety Report 14984207 (Version 2)
Quarter: 2022Q1

REPORT INFORMATION
  Report Type: Spontaneous
  Country: IN (occurrence: IN)
  Receive Date: 20180607
  Receipt Date: 20220130
  Transmission Date: 20220423
  Serious: Yes (Death, Other)
  Sender: FDA-Public Use
  Company Number: IN-JAZZ-2017-IN-016034

PATIENT
  Age: 49 Year
  Sex: Male

DRUGS (3)
  1. DEFIBROTIDE SODIUM [Suspect]
     Active Substance: DEFIBROTIDE SODIUM
     Indication: Thrombotic microangiopathy
     Dosage: EVERY 8 HOURLY (7.5 MG/KG/DAY) FROM DAY 105
  2. CYCLOSPORINE [Concomitant]
     Active Substance: CYCLOSPORINE
     Indication: Graft versus host disease in gastrointestinal tract
  3. METHYLPREDNISOLONE [Concomitant]
     Active Substance: METHYLPREDNISOLONE
     Indication: Graft versus host disease in gastrointestinal tract
     Dosage: 2  KG/DAY, DAY +96

REACTIONS (3)
  - Klebsiella sepsis [Fatal]
  - Haemorrhage [Unknown]
  - Off label use [Unknown]
